FAERS Safety Report 11986762 (Version 1)
Quarter: 2016Q1

REPORT INFORMATION
  Report Type: Spontaneous
  Country: US (occurrence: None)
  Receive Date: 20160201
  Receipt Date: 20160201
  Transmission Date: 20160526
  Serious: Yes (Other)
  Sender: FDA-Public Use
  Company Number: None

PATIENT
  Age: 37 Year
  Sex: Female
  Weight: 79.38 kg

DRUGS (15)
  1. LYRICA [Concomitant]
     Active Substance: PREGABALIN
  2. ASACOL [Concomitant]
     Active Substance: MESALAMINE
  3. PREVACID [Concomitant]
     Active Substance: LANSOPRAZOLE
  4. METFORMIN [Concomitant]
     Active Substance: METFORMIN HYDROCHLORIDE
  5. BIOSIL [Concomitant]
  6. RIVASTIGMINE TRANSDERMAL SYSTEM [Suspect]
     Active Substance: RIVASTIGMINE
     Indication: MEMORY IMPAIRMENT
     Dosage: 1 PATCH DAILY, ONCE DAILY, APPLIED AS MEDICATED PATCH TO SKIN
     Dates: start: 20160121, end: 20160129
  7. WELLBUTRIN [Concomitant]
     Active Substance: BUPROPION HYDROCHLORIDE
  8. SEROQUEL [Concomitant]
     Active Substance: QUETIAPINE FUMARATE
  9. EXELON [Concomitant]
     Active Substance: RIVASTIGMINE TARTRATE
  10. VIT. B12 [Concomitant]
  11. TRAZODONE [Concomitant]
     Active Substance: TRAZODONE HYDROCHLORIDE
  12. RIVASTIGMINE TRANSDERMAL SYSTEM [Suspect]
     Active Substance: RIVASTIGMINE
     Indication: AUTONOMIC NERVOUS SYSTEM IMBALANCE
     Dosage: 1 PATCH DAILY, ONCE DAILY, APPLIED AS MEDICATED PATCH TO SKIN
     Dates: start: 20160121, end: 20160129
  13. METOPROLOL. [Concomitant]
     Active Substance: METOPROLOL
  14. SPIRONOLACTONE. [Concomitant]
     Active Substance: SPIRONOLACTONE
  15. VIT. D [Concomitant]

REACTIONS (3)
  - Drug effect decreased [None]
  - Gastrointestinal hypomotility [None]
  - Product substitution issue [None]

NARRATIVE: CASE EVENT DATE: 20160121
